FAERS Safety Report 8816357 (Version 1)
Quarter: 2012Q4

REPORT INFORMATION
  Report Type: Spontaneous
  Country: US (occurrence: None)
  Receive Date: 20120927
  Receipt Date: 20120927
  Transmission Date: 20130627
  Serious: No
  Sender: FDA-Public Use
  Company Number: None

PATIENT
  Age: 27 Year
  Sex: Female

DRUGS (1)
  1. BUPROPION HYDROCHLORIDE XL [Suspect]
     Indication: MAJOR DEPRESSION
     Dosage: 150 Mg QD PO
     Route: 048
     Dates: start: 20120910

REACTIONS (2)
  - No therapeutic response [None]
  - Drug effect decreased [None]
